FAERS Safety Report 7549836-9 (Version None)
Quarter: 2011Q2

REPORT INFORMATION
  Report Type: 
  Country: None (occurrence: None)
  Receive Date: 20110615
  Receipt Date: 20110606
  Transmission Date: 20111010
  Serious: Yes (Other)
  Sender: FDA-Public Use
  Company Number: JP-AMGEN LTD.-KDC402903

PATIENT
  Age: 72 Year
  Sex: Female
  Weight: 51 kg

DRUGS (4)
  1. ROSUVASTATIN CALCIUM [Concomitant]
     Indication: HYPERLIPIDAEMIA
     Dosage: 2.5 MG, QD
     Route: 048
     Dates: start: 20070101
  2. CRESTOR [Concomitant]
     Indication: HYPERLIPIDAEMIA
     Route: 048
     Dates: start: 20070101
  3. DENOSUMAB [Suspect]
     Indication: OSTEOPOROSIS
     Dosage: UNK UNK, Q6MO
     Route: 058
     Dates: start: 20090616, end: 20100121
  4. NEW CALCICHEW D3 [Concomitant]
     Indication: OSTEOPOROSIS
     Dosage: 2 UNK, QD
     Route: 048
     Dates: start: 20090520, end: 20100115

REACTIONS (1)
  - METASTASES TO LUNG [None]
